FAERS Safety Report 4596672-1 (Version None)
Quarter: 2005Q1

REPORT INFORMATION
  Report Type: 
  Country: None (occurrence: None)
  Receive Date: 20050228
  Receipt Date: 20041214
  Transmission Date: 20050727
  Serious: Yes (Life-Threatening, Hospitalization)
  Sender: FDA-Public Use
  Company Number: 2004106446

PATIENT
  Age: 47 Year
  Sex: Female
  Weight: 46 kg

DRUGS (5)
  1. SOLU-MEDROL [Suspect]
     Indication: MENIERE'S DISEASE
     Dosage: 125 MG (125 MG, QD), INTRAVENOUS
     Route: 042
     Dates: start: 20040805, end: 20040825
  2. ALPROSTADIL [Suspect]
     Indication: MENIERE'S DISEASE
     Dosage: QD, INTRAVENOUS
     Route: 042
     Dates: start: 20040805, end: 20040809
  3. ISOSORBIDE (ISOSORBIDE) [Suspect]
     Indication: MENIERE'S DISEASE
     Dosage: TID, ORAL
     Route: 048
     Dates: start: 20040805, end: 20040826
  4. THIAMINE DISULFIDE (THIAMINE DISULFIDE) [Concomitant]
  5. DRUG, UNSPECIFIED (DRUG, UNSPECIFIED) [Concomitant]

REACTIONS (15)
  - ANOREXIA [None]
  - ASCITES [None]
  - CONSTIPATION [None]
  - EOSINOPHILIA [None]
  - EYE ABSCESS [None]
  - FACE OEDEMA [None]
  - HEPATITIS ACUTE [None]
  - HYPOKALAEMIA [None]
  - LYMPHOCYTE STIMULATION TEST POSITIVE [None]
  - MALAISE [None]
  - PHARYNGITIS [None]
  - PLEURAL EFFUSION [None]
  - RASH GENERALISED [None]
  - SEBORRHOEIC DERMATITIS [None]
  - URINE ABNORMALITY [None]
